FAERS Safety Report 11529263 (Version 1)
Quarter: 2015Q3

REPORT INFORMATION
  Report Type: Spontaneous
  Country: AU (occurrence: AU)
  Receive Date: 20150921
  Receipt Date: 20150921
  Transmission Date: 20151125
  Serious: Yes (Other)
  Sender: FDA-Public Use
  Company Number: AU-CELGENE-AUS-2015092466

PATIENT
  Age: 79 Year
  Sex: Male

DRUGS (9)
  1. BIOSTATE [Concomitant]
     Indication: GASTROINTESTINAL HAEMORRHAGE
     Route: 065
     Dates: end: 201312
  2. BLOOD [Concomitant]
     Active Substance: WHOLE BLOOD
     Route: 065
  3. THALIDOMIDE [Suspect]
     Active Substance: THALIDOMIDE
     Indication: OFF LABEL USE
     Route: 048
  4. BLOOD [Concomitant]
     Active Substance: WHOLE BLOOD
     Indication: GASTROINTESTINAL HAEMORRHAGE
     Route: 065
  5. BLOOD [Concomitant]
     Active Substance: WHOLE BLOOD
     Route: 065
  6. THALIDOMIDE [Suspect]
     Active Substance: THALIDOMIDE
     Route: 048
     Dates: start: 2014
  7. IRON [Concomitant]
     Active Substance: IRON
     Indication: GASTROINTESTINAL HAEMORRHAGE
     Route: 065
  8. THALIDOMIDE [Suspect]
     Active Substance: THALIDOMIDE
     Indication: VON WILLEBRAND^S DISEASE
     Route: 048
     Dates: start: 201304
  9. THALIDOMIDE [Suspect]
     Active Substance: THALIDOMIDE
     Route: 048
     Dates: start: 201307, end: 2014

REACTIONS (5)
  - Acute kidney injury [Unknown]
  - Muscle spasms [Recovered/Resolved]
  - Full blood count decreased [Recovering/Resolving]
  - Gastrointestinal angiodysplasia [Unknown]
  - Rash [Recovered/Resolved]

NARRATIVE: CASE EVENT DATE: 201306
